FAERS Safety Report 10360906 (Version 1)
Quarter: 2014Q3

REPORT INFORMATION
  Report Type: Report from Study
  Country: CA (occurrence: CA)
  Receive Date: 20140804
  Receipt Date: 20140804
  Transmission Date: 20150326
  Serious: Yes (Hospitalization)
  Sender: FDA-Public Use
  Company Number: CA-BRISTOL-MYERS SQUIBB COMPANY-21246780

PATIENT
  Age: 42 Year
  Sex: Female
  Weight: 41 kg

DRUGS (9)
  1. ADVIL [Concomitant]
     Active Substance: IBUPROFEN
  2. NAPROXEN. [Concomitant]
     Active Substance: NAPROXEN
  3. ACETAMINOPHEN. [Concomitant]
     Active Substance: ACETAMINOPHEN
  4. FRAGMIN [Concomitant]
     Active Substance: DALTEPARIN SODIUM
  5. IPILIMUMAB [Suspect]
     Active Substance: IPILIMUMAB
     Indication: ADENOCARCINOMA OF THE CERVIX
     Dosage: 10MG/KGIVOVER90MINUTES ONDAYI;MAIN THERAPY:10MG/KGIVOVER90MINUTESQ12WKS.LASTADMINDOSE:02JUL2014.
     Route: 042
     Dates: start: 20140506
  6. METAMUCIL [Concomitant]
     Active Substance: PLANTAGO SEED
  7. METFORMIN [Concomitant]
     Active Substance: METFORMIN HYDROCHLORIDE
  8. SYNTHROID [Concomitant]
     Active Substance: LEVOTHYROXINE SODIUM
  9. HYDROMORPHONE [Concomitant]
     Active Substance: HYDROMORPHONE

REACTIONS (1)
  - Hyponatraemia [Recovering/Resolving]

NARRATIVE: CASE EVENT DATE: 20140721
